FAERS Safety Report 8477591-7 (Version None)
Quarter: 2012Q2

REPORT INFORMATION
  Report Type: 
  Country: None (occurrence: None)
  Receive Date: 20120626
  Receipt Date: 20120626
  Transmission Date: 20120825
  Serious: Yes (Other)
  Sender: FDA-Public Use
  Company Number: None

PATIENT
  Age: 38 Year
  Sex: Female
  Weight: 86.1834 kg

DRUGS (2)
  1. EFFEXOR XR [Suspect]
     Indication: POSTPARTUM DEPRESSION
     Dosage: 225.5 MG, DAILY, PO
     Route: 048
     Dates: start: 20050105, end: 20101220
  2. . [Concomitant]

REACTIONS (18)
  - DRUG WITHDRAWAL SYNDROME [None]
  - DIARRHOEA [None]
  - DIZZINESS [None]
  - MENSTRUATION IRREGULAR [None]
  - SUICIDAL IDEATION [None]
  - VISION BLURRED [None]
  - ANXIETY [None]
  - ALOPECIA [None]
  - MEMORY IMPAIRMENT [None]
  - MORBID THOUGHTS [None]
  - TACHYPHRENIA [None]
  - DISORIENTATION [None]
  - AKATHISIA [None]
  - WEIGHT DECREASED [None]
  - PANIC REACTION [None]
  - FATIGUE [None]
  - TERMINAL INSOMNIA [None]
  - COGNITIVE DISORDER [None]
